FAERS Safety Report 8798586 (Version 2)
Quarter: 2013Q3

REPORT INFORMATION
  Report Type: Report from Study
  Country: JP (occurrence: JP)
  Receive Date: 20120920
  Receipt Date: 20130701
  Transmission Date: 20140515
  Serious: Yes (Other)
  Sender: FDA-Public Use
  Company Number: JP-VERTEX PHARMACEUTICAL INC.-AE-2012-007096

PATIENT
  Age: 55 Year
  Sex: Female

DRUGS (11)
  1. VX-950 (TELAPREVIR) [Suspect]
     Indication: CHRONIC HEPATITIS C
     Dosage: 1500 MG, QD
     Route: 048
     Dates: start: 20120307, end: 20120529
  2. RIBAVIRIN [Suspect]
     Indication: CHRONIC HEPATITIS C
     Dosage: 600 MG, QD
     Route: 048
     Dates: start: 20120307, end: 20120430
  3. RIBAVIRIN [Suspect]
     Dosage: 400 MG, QD
     Route: 048
     Dates: start: 20120501, end: 20120507
  4. RIBAVIRIN [Suspect]
     Dosage: 200 MG, QD
     Route: 048
     Dates: start: 20120508, end: 20120814
  5. PEGINTERFERON ALFA-2B [Concomitant]
     Dosage: 1.5 ?G/KG, QW
     Route: 058
     Dates: start: 20120307, end: 20120814
  6. FEROTYM [Concomitant]
     Dosage: 100 MG, QD
     Route: 048
  7. EPADEL [Concomitant]
     Dosage: 1800 MG, QD
     Route: 048
  8. LIVALO [Concomitant]
     Dosage: 2 MG, QD
     Route: 048
  9. CLARITIN REDITABS [Concomitant]
     Dosage: 10 MG, QD
     Route: 048
  10. SEFTAC [Concomitant]
     Dosage: 180 G, QD
     Route: 048
  11. PREDONINE [Concomitant]
     Dosage: 20 MG, UNK
     Route: 048
     Dates: start: 20120411, end: 20120730

REACTIONS (5)
  - Rash [Recovered/Resolved]
  - Rash [Recovered/Resolved]
  - Anaemia [Not Recovered/Not Resolved]
  - Anaemia [Not Recovered/Not Resolved]
  - Anaemia [Not Recovered/Not Resolved]
